FAERS Safety Report 20240091 (Version 3)
Quarter: 2022Q1

REPORT INFORMATION
  Report Type: Spontaneous
  Country: FR (occurrence: FR)
  Receive Date: 20211228
  Receipt Date: 20220228
  Transmission Date: 20220423
  Serious: Yes (Other)
  Sender: FDA-Public Use
  Company Number: FR-UCBSA-2021059732

PATIENT
  Sex: Female
  Weight: 22.5 kg

DRUGS (5)
  1. KEPPRA [Suspect]
     Active Substance: LEVETIRACETAM
     Indication: Product used for unknown indication
     Dosage: 100MG/ML
     Dates: end: 2021
  2. KEPPRA [Suspect]
     Active Substance: LEVETIRACETAM
     Dosage: INCREASING THE DOSE
     Dates: start: 2021
  3. KEPPRA [Suspect]
     Active Substance: LEVETIRACETAM
     Dosage: 400 MILLIGRAM, 2X/DAY (BID)
  4. RIVOTRIL [Concomitant]
     Active Substance: CLONAZEPAM
     Indication: Product used for unknown indication
     Dosage: 3 DROP, 2X/DAY (BID)
  5. TEGRETOL [Concomitant]
     Active Substance: CARBAMAZEPINE
     Dosage: UNK
     Route: 065
     Dates: start: 20220210

REACTIONS (5)
  - Seizure [Recovered/Resolved]
  - Cerebral calcification [Unknown]
  - Noninfective encephalitis [Unknown]
  - Disturbance in attention [Unknown]
  - Aphasia [Unknown]

NARRATIVE: CASE EVENT DATE: 20200101
